FAERS Safety Report 6208178-4 (Version None)
Quarter: 2009Q2

REPORT INFORMATION
  Report Type: 
  Country: None (occurrence: None)
  Receive Date: 20090529
  Receipt Date: 20090525
  Transmission Date: 20091009
  Serious: Yes (Hospitalization)
  Sender: FDA-Public Use
  Company Number: FR-BRISTOL-MYERS SQUIBB COMPANY-14636567

PATIENT
  Age: 81 Year
  Sex: Male

DRUGS (16)
  1. AMIKLIN [Suspect]
     Route: 042
     Dates: start: 20090403, end: 20090408
  2. TAVANIC [Suspect]
     Dates: start: 20090327, end: 20090330
  3. TAZOCILLINE [Suspect]
     Dosage: 1 DF = 4G/500MG
     Route: 042
     Dates: start: 20090403, end: 20090417
  4. TIENAM [Suspect]
     Indication: BRONCHITIS
     Dates: start: 20090429, end: 20090505
  5. SYMBICORT [Suspect]
     Dosage: SYMBICORT TURBUHALER
     Dates: start: 20090330
  6. BRICANYL [Suspect]
     Dates: start: 20090330
  7. ATROVENT [Suspect]
     Dates: start: 20090330
  8. LASIX [Suspect]
     Indication: CARDIAC FAILURE
     Dosage: THEN PROGRESSIVELY ONLY 40 MG/D
     Dates: start: 20090327, end: 20090401
  9. CORDARONE [Suspect]
     Indication: VENTRICULAR TACHYCARDIA
     Dosage: 1 DF = 150 MG/3ML 5 VIALS;
     Dates: start: 20090327, end: 20090329
  10. CHRONADALATE [Suspect]
     Indication: HYPERTENSION
     Dosage: CHRONADALATE LP
     Dates: end: 20090327
  11. AMLOR [Suspect]
     Indication: HYPERTENSION
     Dates: start: 20090328, end: 20090331
  12. PREVISCAN [Suspect]
     Indication: ATRIAL FIBRILLATION
     Dosage: STOPPED ON 16APR09-3APR09, RECHALLENGED FROM 23APR-29APR09,ALSO GIVEN FROM 01MAY09 TO 03MAY09
     Dates: start: 20060602, end: 20090503
  13. MODURETIC 5-50 [Concomitant]
  14. EPINITRIL [Concomitant]
     Dosage: EPINITRIL PATCH
  15. TRIATEC [Concomitant]
  16. VENTOLIN [Concomitant]

REACTIONS (2)
  - AGRANULOCYTOSIS [None]
  - LYMPHOPENIA [None]
